FAERS Safety Report 5142984-2 (Version None)
Quarter: 2006Q4

REPORT INFORMATION
  Report Type: 
  Country: None (occurrence: None)
  Receive Date: 20061031
  Receipt Date: 20061031
  Transmission Date: 20070319
  Serious: Yes (Disabling, Congenital Anomaly, Other)
  Sender: FDA-Public Use
  Company Number: None

PATIENT
  Age: 32 Year
  Sex: Female
  Weight: 68.0396 kg

DRUGS (1)
  1. DELALUTIN [Suspect]
     Indication: OVARIAN DISORDER
     Dosage: 250 MG/WEEK  5-17- IM
     Route: 030

REACTIONS (1)
  - ALCOHOL INTERACTION [None]
